FAERS Safety Report 26141237 (Version 1)
Quarter: 2025Q4

REPORT INFORMATION
  Report Type: Spontaneous
  Country: US (occurrence: US)
  Receive Date: 20251210
  Receipt Date: 20251210
  Transmission Date: 20260117
  Serious: No
  Sender: PFIZER
  Company Number: US-PFIZER INC-PV202500143496

PATIENT
  Age: 78 Year
  Sex: Female

DRUGS (1)
  1. GLIPIZIDE [Suspect]
     Active Substance: GLIPIZIDE
     Dosage: UNK

REACTIONS (1)
  - Brain fog [Unknown]
